FAERS Safety Report 19947684 (Version 2)
Quarter: 2021Q4

REPORT INFORMATION
  Report Type: Spontaneous
  Country: US (occurrence: US)
  Receive Date: 20211012
  Receipt Date: 20211210
  Transmission Date: 20220304
  Serious: Yes (Disabling, Other)
  Sender: FDA-Public Use
  Company Number: US-REGENERON PHARMACEUTICALS, INC.-2021-91826

PATIENT

DRUGS (1)
  1. EYLEA [Suspect]
     Active Substance: AFLIBERCEPT
     Indication: Retinal vein occlusion
     Dosage: 2 MG, EVERY 12 WEEKS
     Route: 031
     Dates: start: 201908

REACTIONS (4)
  - Blindness [Unknown]
  - Retinal artery occlusion [Unknown]
  - Photophobia [Unknown]
  - Visual impairment [Unknown]

NARRATIVE: CASE EVENT DATE: 20190101
